FAERS Safety Report 12522916 (Version 4)
Quarter: 2016Q4

REPORT INFORMATION
  Report Type: Report from Study
  Country: NL (occurrence: NL)
  Receive Date: 20160701
  Receipt Date: 20161228
  Transmission Date: 20170207
  Serious: Yes (Hospitalization)
  Sender: FDA-Public Use
  Company Number: NL-SAOL THERAPEUTICS-2016SAO00025

PATIENT

DRUGS (2)
  1. BACLOFEN. [Suspect]
     Active Substance: BACLOFEN
     Dosage: 125.3 ?G, \DAY
     Route: 037
     Dates: start: 20161017, end: 20161017
  2. BACLOFEN. [Suspect]
     Active Substance: BACLOFEN
     Dosage: 96.1 ?G, \DAY
     Route: 037
     Dates: start: 20161017

REACTIONS (3)
  - Medical device site oedema [Recovered/Resolved]
  - Device dislocation [Recovered/Resolved]
  - Implant site extravasation [Recovered/Resolved]

NARRATIVE: CASE EVENT DATE: 20160219
